FAERS Safety Report 6672125-1 (Version None)
Quarter: 2010Q2

REPORT INFORMATION
  Report Type: 
  Country: None (occurrence: None)
  Receive Date: 20100407
  Receipt Date: 20100407
  Transmission Date: 20101027
  Serious: No
  Sender: FDA-Public Use
  Company Number: None

PATIENT
  Sex: Female

DRUGS (3)
  1. METHADONE HCL [Suspect]
     Indication: FIBROMYALGIA
     Dosage: 1 PO BID PO
     Route: 048
     Dates: start: 20100405, end: 20100405
  2. RESCUE INHALER [Concomitant]
  3. BENADRYL [Concomitant]

REACTIONS (1)
  - ANGIOEDEMA [None]
